FAERS Safety Report 7732943-5 (Version None)
Quarter: 2011Q3

REPORT INFORMATION
  Report Type: 
  Country: None (occurrence: None)
  Receive Date: 20110907
  Receipt Date: 20110831
  Transmission Date: 20111222
  Serious: Yes (Hospitalization, Other)
  Sender: FDA-Public Use
  Company Number: BR-PFIZER INC-2011204482

PATIENT
  Age: 79 Year
  Sex: Male
  Weight: 59 kg

DRUGS (8)
  1. AMLODIPINE [Concomitant]
  2. CLONIDINE [Concomitant]
  3. INSULIN [Concomitant]
  4. LOSARTAN [Concomitant]
  5. TRAMADOL [Concomitant]
  6. PROPATYLNITRATE [Concomitant]
  7. ASPIRIN [Concomitant]
  8. SUTENT [Suspect]
     Indication: RENAL CANCER
     Dosage: 50MG IN ALTERNATE DAYS (ODD DAYS)
     Route: 048
     Dates: start: 20101222, end: 20110311

REACTIONS (9)
  - YELLOW SKIN [None]
  - FATIGUE [None]
  - CONSTIPATION [None]
  - DISORIENTATION [None]
  - RESPIRATORY DISORDER [None]
  - NAUSEA [None]
  - THROMBOCYTOPENIA [None]
  - MUCOSAL INFLAMMATION [None]
  - ASTHENIA [None]
